FAERS Safety Report 21609510 (Version 1)
Quarter: 2022Q4

REPORT INFORMATION
  Report Type: Spontaneous
  Country: US (occurrence: None)
  Receive Date: 20221117
  Receipt Date: 20221117
  Transmission Date: 20230112
  Serious: Yes (Other)
  Sender: FDA-Public Use
  Company Number: None

PATIENT
  Age: 58 Year
  Sex: Female
  Weight: 65.25 kg

DRUGS (20)
  1. PAXLOVID [Suspect]
     Active Substance: NIRMATRELVIR\RITONAVIR
     Indication: COVID-19
     Dosage: OTHER QUANTITY : 3 TABLET(S);?FREQUENCY : TWICE A DAY;?
     Route: 048
     Dates: start: 20220921, end: 20220922
  2. FAMOTIDINE [Concomitant]
     Active Substance: FAMOTIDINE
  3. SPIRONOLACTONE [Concomitant]
     Active Substance: SPIRONOLACTONE
  4. CLIMARA PRO [Concomitant]
     Active Substance: ESTRADIOL\LEVONORGESTREL
  5. ALVESCO [Concomitant]
     Active Substance: CICLESONIDE
  6. AVAPRO [Concomitant]
     Active Substance: IRBESARTAN
  7. LEVSIN [Concomitant]
     Active Substance: HYOSCYAMINE SULFATE
  8. ZYRTEC [Concomitant]
     Active Substance: CETIRIZINE HYDROCHLORIDE
  9. SINGULAIR [Concomitant]
     Active Substance: MONTELUKAST SODIUM
  10. HYDROXYCHLOROQUINE [Concomitant]
     Active Substance: HYDROXYCHLOROQUINE
  11. FLONASE [Concomitant]
     Active Substance: FLUTICASONE PROPIONATE
  12. VITAMINS [Concomitant]
     Active Substance: VITAMINS
  13. MAGNESIUM [Concomitant]
     Active Substance: MAGNESIUM
  14. VITAMIN D2 [Concomitant]
     Active Substance: ERGOCALCIFEROL
  15. VITAMIN C [Concomitant]
     Active Substance: ASCORBIC ACID
  16. MELATONIN [Concomitant]
     Active Substance: MELATONIN
  17. MIRALAX [Concomitant]
     Active Substance: POLYETHYLENE GLYCOL 3350
  18. SODIUM BICARBONATE [Concomitant]
     Active Substance: SODIUM BICARBONATE
  19. IRON [Concomitant]
     Active Substance: IRON
  20. PROBIOTICS NOS [Concomitant]
     Active Substance: PROBIOTICS NOS

REACTIONS (7)
  - Dysgeusia [None]
  - Gastritis [None]
  - Nausea [None]
  - Dyspepsia [None]
  - Insomnia [None]
  - Vomiting [None]
  - Therapy cessation [None]

NARRATIVE: CASE EVENT DATE: 20220922
